FAERS Safety Report 8536405-7 (Version None)
Quarter: 2012Q3

REPORT INFORMATION
  Report Type: 
  Country: None (occurrence: None)
  Receive Date: 20120725
  Receipt Date: 20120702
  Transmission Date: 20120928
  Serious: Yes (Hospitalization)
  Sender: FDA-Public Use
  Company Number: FR-009507513-1206FRA00019

PATIENT

DRUGS (4)
  1. SITAGLIPTIN PHOSPHATE [Suspect]
     Indication: TYPE 2 DIABETES MELLITUS
     Dosage: 100 MG, QD
     Route: 048
     Dates: start: 20091214, end: 20110601
  2. DIAMICRON [Suspect]
     Indication: TYPE 2 DIABETES MELLITUS
     Dosage: 60 MG, QD
     Route: 048
     Dates: start: 20110601
  3. GLUCOPHAGE [Suspect]
     Indication: TYPE 2 DIABETES MELLITUS
     Dosage: 1000 MG, TID
     Route: 048
     Dates: start: 20091214
  4. ACARBOSE [Suspect]
     Indication: TYPE 2 DIABETES MELLITUS
     Dosage: 3 DF, QD
     Route: 048
     Dates: start: 20091214

REACTIONS (1)
  - RESPIRATORY DISTRESS [None]
